FAERS Safety Report 23847642 (Version 2)
Quarter: 2024Q2

REPORT INFORMATION
  Report Type: Other
  Country: AE (occurrence: None)
  Receive Date: 20240513
  Receipt Date: 20240528
  Transmission Date: 20240715
  Serious: Yes (Other)
  Sender: FDA-Public Use
  Company Number: AE-ROCHE-3559100

PATIENT
  Age: 43 Year
  Sex: Female

DRUGS (2)
  1. HERCEPTIN [Suspect]
     Active Substance: TRASTUZUMAB
     Indication: Breast cancer
     Route: 065
  2. PERJETA [Suspect]
     Active Substance: PERTUZUMAB
     Indication: Breast cancer
     Route: 065

REACTIONS (6)
  - Breast cancer [Unknown]
  - Neoplasm [Unknown]
  - Hepatic steatosis [Unknown]
  - Spinal osteoarthritis [Unknown]
  - Lymphadenopathy [Unknown]
  - Hepatomegaly [Unknown]
